FAERS Safety Report 22602551 (Version 1)
Quarter: 2023Q2

REPORT INFORMATION
  Report Type: Spontaneous
  Country: KR (occurrence: KR)
  Receive Date: 20230614
  Receipt Date: 20230614
  Transmission Date: 20230722
  Serious: Yes (Death, Hospitalization)
  Sender: FDA-Public Use
  Company Number: KR-STRIDES ARCOLAB LIMITED-2023SP009462

PATIENT
  Age: 16 Year
  Sex: Female

DRUGS (2)
  1. PREDNISOLONE [Suspect]
     Active Substance: PREDNISOLONE
     Indication: Juvenile idiopathic arthritis
     Dosage: 7.5 MILLIGRAM
     Route: 065
  2. SULFASALAZINE [Suspect]
     Active Substance: SULFASALAZINE
     Indication: Juvenile idiopathic arthritis
     Dosage: 500 MILLIGRAM
     Route: 065

REACTIONS (7)
  - Cerebellar microhaemorrhage [Fatal]
  - Brain stem microhaemorrhage [Fatal]
  - Sepsis [Fatal]
  - Brain oedema [Fatal]
  - Hemiparesis [Unknown]
  - Stupor [Unknown]
  - Coma [Unknown]
